FAERS Safety Report 5852468-1 (Version None)
Quarter: 2008Q3

REPORT INFORMATION
  Report Type: 
  Country: None (occurrence: None)
  Receive Date: 20080820
  Receipt Date: 20080820
  Transmission Date: 20090109
  Serious: No
  Sender: FDA-Public Use
  Company Number: None

PATIENT
  Sex: Female

DRUGS (8)
  1. FENTANYL TRANSDERMAL SYSTEM [Suspect]
     Indication: NEUROPATHY PERIPHERAL
     Dosage: APPLY PATCH EVERY 48 HOURS
     Dates: start: 20080724
  2. TRAMADOL HCL [Concomitant]
  3. ULTRAM ER [Concomitant]
  4. ATENOLOL [Concomitant]
  5. CHLORTHALIDONE [Concomitant]
  6. ACTOS [Concomitant]
  7. SPIRONOLACTONE [Concomitant]
  8. FENTANYL TRANSDERMAL SYSTEM [Concomitant]

REACTIONS (2)
  - DRUG INEFFECTIVE [None]
  - PHARMACEUTICAL PRODUCT COMPLAINT [None]
